FAERS Safety Report 7321822-3 (Version None)
Quarter: 2011Q1

REPORT INFORMATION
  Report Type: 
  Country: None (occurrence: None)
  Receive Date: 20110228
  Receipt Date: 20110218
  Transmission Date: 20110831
  Serious: Yes (Other)
  Sender: FDA-Public Use
  Company Number: US-ASTRAZENECA-2011SE01533

PATIENT
  Age: 69 Year
  Sex: Female

DRUGS (1)
  1. ARIMIDEX [Suspect]
     Indication: BREAST CANCER
     Route: 048

REACTIONS (7)
  - PRODUCTIVE COUGH [None]
  - MASS [None]
  - PNEUMONIA [None]
  - BRONCHITIS [None]
  - AXILLARY MASS [None]
  - BREAST MASS [None]
  - INCREASED UPPER AIRWAY SECRETION [None]
